FAERS Safety Report 5355289-1 (Version None)
Quarter: 2007Q2

REPORT INFORMATION
  Report Type: 
  Country: None (occurrence: None)
  Receive Date: 20070531
  Receipt Date: 20070222
  Transmission Date: 20071010
  Serious: Yes (Other)
  Sender: FDA-Public Use
  Company Number: 2007014879

PATIENT
  Sex: Female

DRUGS (1)
  1. SOLU-MEDROL [Suspect]

REACTIONS (1)
  - OSTEONECROSIS [None]
